FAERS Safety Report 7423496-X (Version None)
Quarter: 2011Q2

REPORT INFORMATION
  Report Type: 
  Country: None (occurrence: None)
  Receive Date: 20110419
  Receipt Date: 20110224
  Transmission Date: 20111010
  Serious: Yes (Hospitalization)
  Sender: FDA-Public Use
  Company Number: US-BAYER-201041450NA

PATIENT
  Age: 20 Year
  Sex: Female
  Weight: 59 kg

DRUGS (7)
  1. OCELLA [Suspect]
     Indication: ACNE
     Dosage: UNK UNK, QD
     Dates: start: 20090101
  2. YASMIN [Suspect]
     Indication: ACNE
     Dosage: UNK UNK, QD
     Dates: start: 20060401, end: 20090101
  3. KETOCONAZOLE [Concomitant]
     Dosage: UNK
     Dates: start: 20061108
  4. SENOKOT [Concomitant]
     Dosage: UNK
     Route: 048
     Dates: start: 20060825
  5. DULCOLAX [Concomitant]
     Dosage: UNK
     Route: 054
     Dates: start: 20080825
  6. YASMIN [Suspect]
     Indication: CONTRACEPTION
  7. OCELLA [Suspect]
     Indication: CONTRACEPTION

REACTIONS (5)
  - CHOLECYSTITIS CHRONIC [None]
  - BILIARY DYSKINESIA [None]
  - INJURY [None]
  - PAIN [None]
  - GALLBLADDER DISORDER [None]
